FAERS Safety Report 7878788-7 (Version None)
Quarter: 2011Q4

REPORT INFORMATION
  Report Type: 
  Country: None (occurrence: None)
  Receive Date: 20111028
  Receipt Date: 20111020
  Transmission Date: 20120403
  Serious: Yes (Hospitalization)
  Sender: FDA-Public Use
  Company Number: JPI-P-017818

PATIENT
  Age: 36 Year
  Sex: Female

DRUGS (3)
  1. XYREM [Suspect]
     Indication: HYPERSOMNIA
     Dosage: 4.5 GM (2.25 GM, 2 IN 1 D), ORAL; ORAL; 9 GM (4.5 GM, 2 IN 2 D), ORAL
     Route: 048
     Dates: start: 20110101, end: 20110519
  2. XYREM [Suspect]
     Indication: HYPERSOMNIA
     Dosage: 4.5 GM (2.25 GM, 2 IN 1 D), ORAL; ORAL; 9 GM (4.5 GM, 2 IN 2 D), ORAL
     Route: 048
     Dates: start: 20110520
  3. XYREM [Suspect]
     Indication: HYPERSOMNIA
     Dosage: 4.5 GM (2.25 GM, 2 IN 1 D), ORAL; ORAL; 9 GM (4.5 GM, 2 IN 2 D), ORAL
     Route: 048
     Dates: start: 20110114, end: 20110101

REACTIONS (1)
  - STAPHYLOCOCCAL INFECTION [None]
